FAERS Safety Report 8851863 (Version 2)
Quarter: 2012Q4

REPORT INFORMATION
  Report Type: 
  Country: JP (occurrence: JP)
  Receive Date: 20121022
  Receipt Date: 20121119
  Transmission Date: 20130627
  Serious: Yes (Other)
  Sender: FDA-Public Use
  Company Number: JP-009507513-1210JPN008018

PATIENT
  Age: 70 Year
  Sex: Male
  Weight: 87 kg

DRUGS (15)
  1. PEGINTRON [Suspect]
     Indication: CHRONIC HEPATITIS C
     Dosage: 80 Microgram, qw
     Route: 058
     Dates: start: 20121002, end: 20121008
  2. PEGINTRON [Suspect]
     Dosage: 40 Microgram, qw
     Route: 058
     Dates: start: 20121009, end: 20121015
  3. PEGINTRON [Suspect]
     Dosage: 80 Microgram, qw
     Route: 058
     Dates: start: 20121016, end: 20121031
  4. PEGINTRON [Suspect]
     Dosage: 100 Microgram, qw
     Route: 058
     Dates: start: 20121101
  5. REBETOL [Suspect]
     Indication: CHRONIC HEPATITIS C
     Dosage: 600 mg, qd
     Route: 048
     Dates: start: 20121002, end: 20121004
  6. REBETOL [Suspect]
     Dosage: 400 mg, qd
     Route: 048
     Dates: start: 20121005, end: 20121009
  7. REBETOL [Suspect]
     Dosage: 600 mg, qd
     Route: 048
     Dates: start: 20121010, end: 20121031
  8. REBETOL [Suspect]
     Dosage: 800 mg, qd
     Route: 048
     Dates: start: 20121101
  9. TELAVIC [Suspect]
     Indication: CHRONIC HEPATITIS C
     Dosage: 1500 mg, qd
     Route: 048
     Dates: start: 20121002, end: 20121004
  10. TELAVIC [Suspect]
     Dosage: 1250 mg, qd
     Route: 048
     Dates: start: 20121005, end: 20121005
  11. TELAVIC [Suspect]
     Dosage: 500 mg, qd
     Route: 048
     Dates: start: 20121006, end: 20121017
  12. JANUVIA TABLETS 50MG [Concomitant]
     Indication: DIABETES MELLITUS
     Dosage: 50 mg, qd
     Route: 048
  13. AMARYL [Concomitant]
     Indication: DIABETES MELLITUS
     Dosage: 3 mg, qd
     Route: 048
  14. LOXONIN [Concomitant]
     Indication: PROPHYLAXIS
     Dosage: 60 mg/day, as needed
     Route: 048
     Dates: start: 20121002, end: 20121003
  15. MYSLEE [Concomitant]
     Indication: INSOMNIA
     Dosage: 5 mg/day, as needed
     Route: 048
     Dates: start: 20121005, end: 20121012

REACTIONS (1)
  - Drug eruption [Recovered/Resolved]
